FAERS Safety Report 25595622 (Version 1)
Quarter: 2025Q3

REPORT INFORMATION
  Report Type: Spontaneous
  Country: EU (occurrence: EU)
  Receive Date: 20250723
  Receipt Date: 20250723
  Transmission Date: 20251020
  Serious: Yes (Other)
  Sender: AMGEN
  Company Number: EU-ROCHE-10000332806

PATIENT

DRUGS (2)
  1. TRASTUZUMAB [Suspect]
     Active Substance: TRASTUZUMAB
     Indication: Breast cancer
     Route: 065
     Dates: start: 20230727
  2. PERTUZUMAB [Suspect]
     Active Substance: PERTUZUMAB
     Indication: Breast cancer
     Route: 065
     Dates: start: 20230727

REACTIONS (10)
  - Polyneuropathy [Unknown]
  - Diarrhoea [Unknown]
  - Stomatitis [Unknown]
  - Dry skin [Unknown]
  - Nausea [Unknown]
  - Diarrhoea [Unknown]
  - Epistaxis [Unknown]
  - Arthralgia [Unknown]
  - Radiation skin injury [Unknown]
  - Procedural pain [Unknown]

NARRATIVE: CASE EVENT DATE: 20230728
